FAERS Safety Report 4989768-3 (Version None)
Quarter: 2006Q2

REPORT INFORMATION
  Report Type: 
  Country: None (occurrence: None)
  Receive Date: 20060501
  Receipt Date: 20060427
  Transmission Date: 20061013
  Serious: Yes (Other)
  Sender: FDA-Public Use
  Company Number: A20060322

PATIENT
  Age: 67 Year
  Sex: Female

DRUGS (3)
  1. CRAVIT [Suspect]
     Indication: CONJUNCTIVITIS
     Dosage: 4 TIMES DAILY INTRAOCULAR INSTILLATION
     Route: 031
     Dates: start: 20060406, end: 20060408
  2. KARI UNI OPHTHALMIC SOLUTION (PIRENOXINE) [Concomitant]
  3. LINOLOSAL              (BETAMETHASONE SODIUM PHOSPHATE ) [Concomitant]

REACTIONS (5)
  - CONJUNCTIVITIS [None]
  - CORNEAL EROSION [None]
  - CORNEAL OPACITY [None]
  - EYE PAIN [None]
  - VISUAL ACUITY REDUCED [None]
